FAERS Safety Report 6441171-5 (Version None)
Quarter: 2009Q4

REPORT INFORMATION
  Report Type: 
  Country: None (occurrence: None)
  Receive Date: 20091112
  Receipt Date: 20091103
  Transmission Date: 20100525
  Serious: Yes (Hospitalization)
  Sender: FDA-Public Use
  Company Number: FABR-1000768

PATIENT
  Age: 14 Year
  Sex: Male
  Weight: 46.3 kg

DRUGS (13)
  1. FABRAZYME [Suspect]
     Indication: FABRY'S DISEASE
     Dosage: 44 MG, Q2W, INTRAVENOUS
     Route: 042
     Dates: start: 20050923, end: 20091001
  2. FABRAZYME [Suspect]
  3. FABRAZYME [Suspect]
  4. FABRAZYME [Suspect]
  5. LYRICA [Concomitant]
  6. TYLENOL [Concomitant]
  7. MOTRIN [Concomitant]
  8. BENADRYL [Concomitant]
  9. SOLU-CORTEF [Concomitant]
  10. TYLENOL [Concomitant]
  11. PULMICORT [Concomitant]
  12. OXYCODONE HCL [Concomitant]
  13. IBUPROFEN [Concomitant]

REACTIONS (14)
  - CATHETER SITE PAIN [None]
  - CHILLS [None]
  - CONDITION AGGRAVATED [None]
  - DEVICE RELATED INFECTION [None]
  - HEART RATE INCREASED [None]
  - INAPPROPRIATE SCHEDULE OF DRUG ADMINISTRATION [None]
  - MEDICAL DEVICE COMPLICATION [None]
  - PAIN [None]
  - PARAESTHESIA [None]
  - PYREXIA [None]
  - RESPIRATORY RATE INCREASED [None]
  - STAPHYLOCOCCAL BACTERAEMIA [None]
  - TREATMENT NONCOMPLIANCE [None]
  - VOMITING [None]
